FAERS Safety Report 4724016-0 (Version None)
Quarter: 2005Q3

REPORT INFORMATION
  Report Type: 
  Country: None (occurrence: None)
  Receive Date: 20050722
  Receipt Date: 20050718
  Transmission Date: 20060218
  Serious: Yes (Death, Other)
  Sender: FDA-Public Use
  Company Number: USA-2005-0020370

PATIENT
  Age: 38 Year
  Sex: Male
  Weight: 113.4 kg

DRUGS (5)
  1. OXYCODONE HCL [Suspect]
  2. MORPHINE [Suspect]
  3. SERTRALINE HCL [Suspect]
     Indication: MENTAL DISORDER
  4. MIRTAZAPINE [Suspect]
     Indication: SCHIZOAFFECTIVE DISORDER
  5. QUETIAPINE FUMARATE [Suspect]
     Indication: SCHIZOAFFECTIVE DISORDER

REACTIONS (8)
  - DRUG TOXICITY [None]
  - HEPATIC STEATOSIS [None]
  - MULTIPLE DRUG OVERDOSE [None]
  - POLYSUBSTANCE ABUSE [None]
  - PULMONARY CONGESTION [None]
  - PULMONARY OEDEMA [None]
  - SCHIZOAFFECTIVE DISORDER [None]
  - SELF-MEDICATION [None]
